FAERS Safety Report 15368552 (Version 1)
Quarter: 2018Q4

REPORT INFORMATION
  Report Type: Spontaneous
  Country: CN (occurrence: CN)
  Receive Date: 20180910
  Receipt Date: 20180910
  Transmission Date: 20190204
  Serious: Yes (Other)
  Sender: FDA-Public Use
  Company Number: CN-BAXTER-2018BAX023041

PATIENT
  Age: 33 Year
  Sex: Male
  Weight: 68 kg

DRUGS (7)
  1. ETHAMBUTOL HYDROCHLORIDE. [Suspect]
     Active Substance: ETHAMBUTOL HYDROCHLORIDE
     Indication: ANTIBIOTIC THERAPY
     Dosage: TABLETS
     Route: 048
     Dates: start: 20180711, end: 20180723
  2. SHULANXIN (RIFAMPIN) [Suspect]
     Active Substance: RIFAMPIN
     Indication: TUBERCULOSIS
     Dosage: DILUTED WITH GLUCOSE
     Route: 041
     Dates: start: 20180711, end: 20180719
  3. PYRAZINAMIDE. [Suspect]
     Active Substance: PYRAZINAMIDE
     Indication: TUBERCULOSIS
     Dosage: CAPSULES
     Route: 048
     Dates: start: 20180711, end: 20180719
  4. ISONIAZID. [Suspect]
     Active Substance: ISONIAZID
     Indication: TUBERCULOSIS
     Dosage: TABLETS
     Route: 048
     Dates: start: 20180711, end: 20180723
  5. LAILIXIN [Suspect]
     Active Substance: LEVOFLOXACIN
     Indication: ANTI-INFECTIVE THERAPY
  6. 5% GLUCOSE  INJECTION [Suspect]
     Active Substance: DEXTROSE
     Indication: MEDICATION DILUTION
     Dosage: DILUENT WITH RIFAMPICIN
     Route: 041
     Dates: start: 20180711, end: 20180719
  7. LAILIXIN [Suspect]
     Active Substance: LEVOFLOXACIN
     Indication: HAEMOPTYSIS
     Route: 041
     Dates: start: 20180709, end: 20180723

REACTIONS (1)
  - Liver injury [Recovering/Resolving]

NARRATIVE: CASE EVENT DATE: 20180719
